FAERS Safety Report 16536387 (Version 2)
Quarter: 2019Q3

REPORT INFORMATION
  Report Type: Spontaneous
  Country: DE (occurrence: DE)
  Receive Date: 20190706
  Receipt Date: 20190910
  Transmission Date: 20191004
  Serious: Yes (Congenital Anomaly, Other)
  Sender: FDA-Public Use
  Company Number: DE-AUROBINDO-AUR-APL-2019-037635

PATIENT
  Age: 9 Month
  Sex: Male
  Weight: 3.97 kg

DRUGS (12)
  1. BEPANTHEN [Concomitant]
     Indication: NASAL DISCOMFORT
     Dosage: UNK
     Route: 064
  2. EFEROX [Concomitant]
     Active Substance: LEVOTHYROXINE SODIUM
     Indication: HYPOTHYROIDISM
     Dosage: 112 MICROGRAM, ONCE A DAY
     Route: 064
     Dates: start: 20160414, end: 20170122
  3. OXYTOCIN. [Concomitant]
     Active Substance: OXYTOCIN
     Indication: LABOUR INDUCTION
     Dosage: UNK
     Route: 064
     Dates: start: 20170122
  4. SERTRALINE [Suspect]
     Active Substance: SERTRALINE HYDROCHLORIDE
     Indication: DEPRESSION
     Dosage: 50 MG, ONCE DAILY (QD)
     Route: 064
     Dates: start: 201604, end: 20170122
  5. WICK INHALIERSTIFT N [Concomitant]
     Indication: NASOPHARYNGITIS
     Dosage: UNK
     Route: 064
     Dates: start: 20160609, end: 20160609
  6. FOLIC ACID. [Concomitant]
     Active Substance: FOLIC ACID
     Indication: PROPHYLAXIS OF NEURAL TUBE DEFECT
     Dosage: 0.8 MILLIGRAM, DAILY
     Route: 064
     Dates: start: 20160414
  7. INIMUR MYKO [Concomitant]
     Indication: VULVOVAGINAL MYCOTIC INFECTION
     Dosage: UNK
     Route: 064
  8. NYSTATIN. [Concomitant]
     Active Substance: NYSTATIN
     Indication: VULVOVAGINAL MYCOTIC INFECTION
     Dosage: UNK
     Route: 064
  9. VITAMIN D [Concomitant]
     Active Substance: VITAMIN D NOS
     Indication: VITAMIN D DEFICIENCY
     Dosage: 1000 INTERNATIONAL UNIT, ONCE A DAY
     Route: 064
  10. BALDRIAN-DISPERT [Concomitant]
     Active Substance: VALERIAN
     Indication: SLEEP DISORDER
     Dosage: 45 MILLIGRAM, ONCE A DAY
     Route: 064
  11. FEMIBION 1 [Concomitant]
     Indication: PROPHYLAXIS OF NEURAL TUBE DEFECT
     Dosage: UNK, 0.8 [MG/D (BIS 0.4) ]
     Route: 064
     Dates: start: 20160414
  12. LEVETIRACETAM. [Suspect]
     Active Substance: LEVETIRACETAM
     Indication: EPILEPSY
     Dosage: 1000 MILLIGRAM, DAILY (500 MG, 2X/DAY (BID))
     Route: 064
     Dates: start: 201604, end: 20170122

REACTIONS (2)
  - Cerebral haemorrhage neonatal [Unknown]
  - Foetal exposure during pregnancy [Unknown]

NARRATIVE: CASE EVENT DATE: 201604
